FAERS Safety Report 8677002 (Version 3)
Quarter: 2013Q2

REPORT INFORMATION
  Report Type: Spontaneous
  Country: US (occurrence: US)
  Receive Date: 20120723
  Receipt Date: 20130422
  Transmission Date: 20140414
  Serious: Yes (Hospitalization, Other)
  Sender: FDA-Public Use
  Company Number: US-BAYER-2012-071804

PATIENT
  Age: 27 Year
  Sex: Female
  Weight: 112.47 kg

DRUGS (6)
  1. YASMIN [Suspect]
     Indication: PREMENSTRUAL SYNDROME
     Dosage: UNK
     Dates: start: 2005, end: 20071110
  2. OCELLA [Suspect]
     Indication: PREMENSTRUAL SYNDROME
  3. [UNSPECIFIED] INHALERS [Concomitant]
  4. COMBIVENT INHALER [Concomitant]
  5. TYLENOL #3 [Concomitant]
     Dosage: 2
     Route: 048
  6. BENADRYL [Concomitant]
     Dosage: 25 MG, UNK
     Route: 048

REACTIONS (8)
  - Cholelithiasis [None]
  - Cholecystitis chronic [None]
  - Thrombophlebitis superficial [None]
  - Emotional distress [None]
  - Pain [None]
  - Anxiety [None]
  - Abdominal pain upper [None]
  - Off label use [None]
